FAERS Safety Report 11186585 (Version 1)
Quarter: 2015Q2

REPORT INFORMATION
  Report Type: Report from Study
  Country: GB (occurrence: GB)
  Receive Date: 20150613
  Receipt Date: 20150613
  Transmission Date: 20150821
  Serious: Yes (Hospitalization)
  Sender: FDA-Public Use
  Company Number: PHFR2015GB004453

PATIENT
  Sex: Female

DRUGS (1)
  1. TOBI [Suspect]
     Active Substance: TOBRAMYCIN
     Indication: CYSTIC FIBROSIS
     Dosage: 300 MG, UNK
     Route: 065

REACTIONS (1)
  - Infection [Unknown]
